FAERS Safety Report 6424431-3 (Version None)
Quarter: 2009Q4

REPORT INFORMATION
  Report Type: 
  Country: None (occurrence: None)
  Receive Date: 20091029
  Receipt Date: 20091020
  Transmission Date: 20100525
  Serious: Yes (Hospitalization)
  Sender: FDA-Public Use
  Company Number: FABR-11986

PATIENT
  Age: 80 Year
  Sex: Male
  Weight: 65 kg

DRUGS (11)
  1. FABRAZYME [Suspect]
     Indication: FABRY'S DISEASE
     Dosage: 60 MG, UNK, INTRAVENOUS 65 MG, UNK, INTRAVENOUS 60 MG, Q2W, INTRAVENOUS
     Route: 042
     Dates: start: 20061026, end: 20070302
  2. FABRAZYME [Suspect]
     Indication: FABRY'S DISEASE
     Dosage: 60 MG, UNK, INTRAVENOUS 65 MG, UNK, INTRAVENOUS 60 MG, Q2W, INTRAVENOUS
     Route: 042
     Dates: start: 20081216, end: 20081216
  3. FABRAZYME [Suspect]
     Indication: FABRY'S DISEASE
     Dosage: 60 MG, UNK, INTRAVENOUS 65 MG, UNK, INTRAVENOUS 60 MG, Q2W, INTRAVENOUS
     Route: 042
     Dates: start: 20061027
  4. FABRAZYME [Suspect]
     Indication: FABRY'S DISEASE
     Dosage: 60 MG, UNK, INTRAVENOUS 65 MG, UNK, INTRAVENOUS 60 MG, Q2W, INTRAVENOUS
     Route: 042
     Dates: start: 20070516
  5. ACETAMINOPHEN [Concomitant]
  6. HYDROXYZINE PAMOATE [Concomitant]
  7. ENALAPRIL MALEATE [Concomitant]
  8. FUROSEMIDE [Concomitant]
  9. SPIRONOLACTONE [Concomitant]
  10. CARBOCISTEINE (CARBOCISTEIN) [Concomitant]
  11. OXYGEN (OXYGEN) [Concomitant]

REACTIONS (10)
  - AORTIC VALVE INCOMPETENCE [None]
  - BLOOD CREATINE INCREASED [None]
  - BLOOD UREA INCREASED [None]
  - BUNDLE BRANCH BLOCK RIGHT [None]
  - CARDIAC FAILURE CONGESTIVE [None]
  - CONDITION AGGRAVATED [None]
  - EJECTION FRACTION DECREASED [None]
  - HAEMOGLOBIN DECREASED [None]
  - MITRAL VALVE INCOMPETENCE [None]
  - TRICUSPID VALVE INCOMPETENCE [None]
